FAERS Safety Report 6912767-9 (Version None)
Quarter: 2010Q3

REPORT INFORMATION
  Report Type: 
  Country: None (occurrence: None)
  Receive Date: 20100806
  Receipt Date: 20081121
  Transmission Date: 20110219
  Serious: No
  Sender: FDA-Public Use
  Company Number: US-PFIZER INC-2008099944

PATIENT
  Age: 6 Year
  Sex: Male

DRUGS (1)
  1. DETROL LA [Suspect]
     Indication: ENURESIS

REACTIONS (3)
  - ABNORMAL BEHAVIOUR [None]
  - DISTURBANCE IN ATTENTION [None]
  - PERSONALITY DISORDER [None]
